FAERS Safety Report 7214954-1 (Version None)
Quarter: 2011Q1

REPORT INFORMATION
  Report Type: 
  Country: None (occurrence: None)
  Receive Date: 20110107
  Receipt Date: 20100607
  Transmission Date: 20110831
  Serious: No
  Sender: FDA-Public Use
  Company Number: A0863324A

PATIENT
  Age: 55 Year
  Sex: Female

DRUGS (3)
  1. VAGIFEM [Concomitant]
  2. ESTRACE [Concomitant]
  3. LOVAZA [Suspect]
     Indication: BLOOD CHOLESTEROL INCREASED
     Dosage: 2CAP TWICE PER DAY
     Route: 048
     Dates: start: 20100201

REACTIONS (1)
  - DRUG INEFFECTIVE [None]
